FAERS Safety Report 6695122-9 (Version None)
Quarter: 2010Q2

REPORT INFORMATION
  Report Type: 
  Country: None (occurrence: None)
  Receive Date: 20100423
  Receipt Date: 20100420
  Transmission Date: 20101027
  Serious: Yes (Death, Other)
  Sender: FDA-Public Use
  Company Number: PHHY2010CA15300

PATIENT
  Sex: Female

DRUGS (5)
  1. EXELON [Suspect]
     Dosage: UNK
     Route: 062
     Dates: start: 20090410
  2. NITRODERM [Concomitant]
     Dosage: UNK
  3. PANTOPRAZOLE [Concomitant]
     Dosage: UNK
  4. LIPITOR [Concomitant]
     Dosage: UNK
  5. DIOVAN [Concomitant]
     Dosage: UNK

REACTIONS (2)
  - DEMENTIA ALZHEIMER'S TYPE [None]
  - MYOCARDIAL INFARCTION [None]
